FAERS Safety Report 16692394 (Version 1)
Quarter: 2019Q3

REPORT INFORMATION
  Report Type: Spontaneous
  Country: US (occurrence: US)
  Receive Date: 20190812
  Receipt Date: 20190812
  Transmission Date: 20191004
  Serious: No
  Sender: FDA-Public Use
  Company Number: US-PFIZER INC-2019340002

PATIENT
  Age: 31 Year
  Sex: Female

DRUGS (1)
  1. EUCRISA [Suspect]
     Active Substance: CRISABOROLE
     Dosage: UNK, APPLY TO AFFECTED AREAS TWICE A DAY

REACTIONS (2)
  - Skin haemorrhage [Unknown]
  - Pruritus [Unknown]
